FAERS Safety Report 12705466 (Version 1)
Quarter: 2016Q3

REPORT INFORMATION
  Report Type: Spontaneous
  Country: US (occurrence: US)
  Receive Date: 20160901
  Receipt Date: 20160901
  Transmission Date: 20161109
  Serious: No
  Sender: FDA-Public Use
  Company Number: US-BIOGEN-2016BI00286142

PATIENT
  Sex: Female

DRUGS (1)
  1. AVONEX [Suspect]
     Active Substance: INTERFERON BETA-1A
     Indication: MULTIPLE SCLEROSIS
     Route: 030
     Dates: start: 20110425

REACTIONS (4)
  - Memory impairment [Recovered/Resolved]
  - Diabetes mellitus [Recovered/Resolved]
  - Cognitive disorder [Recovered/Resolved]
  - Infection [Recovered/Resolved]
